FAERS Safety Report 9243438 (Version 1)
Quarter: 2013Q2

REPORT INFORMATION
  Report Type: Spontaneous
  Country: US (occurrence: US)
  Receive Date: 20130421
  Receipt Date: 20130421
  Transmission Date: 20140414
  Serious: No
  Sender: FDA-Public Use
  Company Number: US-ASTRAZENECA-2013SE24509

PATIENT
  Age: 66 Year
  Sex: Female
  Weight: 85.7 kg

DRUGS (3)
  1. CRESTOR [Suspect]
     Indication: BLOOD CHOLESTEROL INCREASED
     Route: 048
     Dates: start: 2010
  2. MEGA RED [Concomitant]
     Dosage: UNK
  3. COQ10 [Concomitant]
     Dosage: UNK

REACTIONS (4)
  - Muscle spasms [Unknown]
  - Musculoskeletal discomfort [Unknown]
  - Blood cholesterol increased [Unknown]
  - Drug ineffective [Unknown]
